FAERS Safety Report 19833337 (Version 1)
Quarter: 2021Q3

REPORT INFORMATION
  Report Type: Spontaneous
  Country: FR (occurrence: FR)
  Receive Date: 20210915
  Receipt Date: 20210915
  Transmission Date: 20211014
  Serious: Yes (Other)
  Sender: FDA-Public Use
  Company Number: NVSC2021FR202527

PATIENT
  Age: 48 Year
  Sex: Male
  Weight: 56 kg

DRUGS (3)
  1. RIFAMPICIN [Suspect]
     Active Substance: RIFAMPIN
     Indication: PNEUMONIA
     Dosage: 600 MG,QD
     Route: 048
     Dates: start: 20210323
  2. DEXAMBUTOL [Suspect]
     Active Substance: ETHAMBUTOL HYDROCHLORIDE
     Indication: PNEUMONIA
     Dosage: 1 G,QD
     Route: 048
     Dates: start: 20210323
  3. AMIKLIN [Suspect]
     Active Substance: AMIKACIN SULFATE
     Indication: PNEUMONIA
     Dosage: 15 UNK,QD
     Route: 042
     Dates: start: 202105, end: 20210617

REACTIONS (1)
  - Deafness neurosensory [Not Recovered/Not Resolved]

NARRATIVE: CASE EVENT DATE: 202107
